FAERS Safety Report 16214376 (Version 2)
Quarter: 2019Q2

REPORT INFORMATION
  Report Type: Spontaneous
  Country: US (occurrence: US)
  Receive Date: 20190418
  Receipt Date: 20190618
  Transmission Date: 20190711
  Serious: Yes (Other)
  Sender: FDA-Public Use
  Company Number: US-ASTRAZENECA-2019SE55640

PATIENT
  Age: 26048 Day
  Sex: Female
  Weight: 52.6 kg

DRUGS (44)
  1. NEXIUM [Suspect]
     Active Substance: ESOMEPRAZOLE MAGNESIUM
     Indication: GASTROOESOPHAGEAL REFLUX DISEASE
     Route: 048
     Dates: start: 20151213
  2. PRAVASTATIN. [Concomitant]
     Active Substance: PRAVASTATIN
     Indication: BLOOD CHOLESTEROL
     Dates: start: 201706, end: 201707
  3. ASPIRIN. [Concomitant]
     Active Substance: ASPIRIN
     Indication: COAGULATION FACTOR
     Dates: start: 1999
  4. CARBOXYMETHYL [Concomitant]
     Dates: start: 2001
  5. ALBUTEROL. [Concomitant]
     Active Substance: ALBUTEROL
     Dates: start: 2001
  6. MESALAMINE. [Concomitant]
     Active Substance: MESALAMINE
     Dates: start: 2001
  7. ESTROGEN [Concomitant]
     Active Substance: ESTROGENS
     Dates: start: 2001
  8. NEXIUM [Suspect]
     Active Substance: ESOMEPRAZOLE MAGNESIUM
     Indication: GASTROOESOPHAGEAL REFLUX DISEASE
     Route: 048
     Dates: start: 2003, end: 2015
  9. MELOXICAM. [Concomitant]
     Active Substance: MELOXICAM
     Indication: PAIN
     Dates: start: 200810, end: 201603
  10. CLINDAMYCIN. [Concomitant]
     Active Substance: CLINDAMYCIN
     Dates: start: 2001
  11. PREVACID [Suspect]
     Active Substance: LANSOPRAZOLE
     Indication: GASTROOESOPHAGEAL REFLUX DISEASE
     Route: 065
     Dates: start: 2003, end: 2015
  12. FELODIPINE. [Concomitant]
     Active Substance: FELODIPINE
     Indication: CARDIAC DISORDER
     Dates: start: 201112, end: 201706
  13. ROSUVASTATIN. [Concomitant]
     Active Substance: ROSUVASTATIN
     Indication: BLOOD CHOLESTEROL
     Dates: start: 201403, end: 201703
  14. ZANTAC [Concomitant]
     Active Substance: RANITIDINE HYDROCHLORIDE
  15. OLOPATADINE. [Concomitant]
     Active Substance: OLOPATADINE
     Dates: start: 2001
  16. NAPROXEN. [Concomitant]
     Active Substance: NAPROXEN
     Dates: start: 2001
  17. SITAGLIPTIN [Concomitant]
     Active Substance: SITAGLIPTIN
     Dates: start: 2001
  18. IBUPROFEN. [Concomitant]
     Active Substance: IBUPROFEN
     Dates: start: 2001
  19. LOSARTAN. [Concomitant]
     Active Substance: LOSARTAN
     Indication: BLOOD PRESSURE MEASUREMENT
  20. CYCLOBENZAPRINE. [Concomitant]
     Active Substance: CYCLOBENZAPRINE
     Indication: MUSCLE RELAXANT THERAPY
     Dates: start: 200208, end: 201706
  21. CYCLOBENZAPRINE. [Concomitant]
     Active Substance: CYCLOBENZAPRINE
     Dates: start: 2001
  22. HYDROXYZINE HYDROCHLORIDE. [Concomitant]
     Active Substance: HYDROXYZINE HYDROCHLORIDE
     Dates: start: 2001
  23. AZITHROMYCIN ANHYDROUS. [Concomitant]
     Active Substance: AZITHROMYCIN ANHYDROUS
     Dates: start: 2001
  24. HYDROMORPHONE [Concomitant]
     Active Substance: HYDROMORPHONE
     Dates: start: 2001
  25. ACIPHEX [Suspect]
     Active Substance: RABEPRAZOLE SODIUM
     Indication: GASTROOESOPHAGEAL REFLUX DISEASE
     Route: 065
     Dates: start: 2003, end: 2007
  26. CELECOXIB. [Concomitant]
     Active Substance: CELECOXIB
     Dates: start: 2001
  27. LIDOCAINE. [Concomitant]
     Active Substance: LIDOCAINE
     Dates: start: 2001
  28. ONDASETRON [Concomitant]
     Active Substance: ONDANSETRON
     Dates: start: 2001
  29. EMPAGLIFLOZIN [Concomitant]
     Active Substance: EMPAGLIFLOZIN
     Indication: DIABETES MELLITUS
  30. METFORMIN [Concomitant]
     Active Substance: METFORMIN HYDROCHLORIDE
     Indication: DIABETES MELLITUS
     Dates: start: 200003, end: 201702
  31. RANITIDINE. [Concomitant]
     Active Substance: RANITIDINE
     Dates: start: 200007, end: 201606
  32. ALKA-SELTZER [Concomitant]
     Active Substance: ANHYDROUS CITRIC ACID\ASPIRIN\SODIUM BICARBONATE
     Dates: start: 2001
  33. PENICILLIN [Concomitant]
     Active Substance: PENICILLIN
     Dates: start: 2001
  34. PRAVASTATIN. [Concomitant]
     Active Substance: PRAVASTATIN
     Dates: start: 2001
  35. OFLOXACIN. [Concomitant]
     Active Substance: OFLOXACIN
     Dates: start: 2001
  36. SIMVASTATIN. [Concomitant]
     Active Substance: SIMVASTATIN
     Dates: start: 2001
  37. CETIRIZINE [Concomitant]
     Active Substance: CETIRIZINE HYDROCHLORIDE
     Dates: start: 2001
  38. BENZONATATE. [Concomitant]
     Active Substance: BENZONATATE
     Dates: start: 2001
  39. PHENAZOPYRIDINE. [Concomitant]
     Active Substance: PHENAZOPYRIDINE
     Dates: start: 2001
  40. NEXIUM [Suspect]
     Active Substance: ESOMEPRAZOLE MAGNESIUM
     Indication: GASTROOESOPHAGEAL REFLUX DISEASE
     Route: 048
     Dates: start: 2008, end: 2016
  41. GLIPIZIDE. [Concomitant]
     Active Substance: GLIPIZIDE
     Indication: DIABETES MELLITUS
     Dates: start: 199701, end: 201703
  42. LIDOCAINE. [Concomitant]
     Active Substance: LIDOCAINE
     Indication: PAIN
     Dates: start: 200801, end: 201702
  43. FLUTICASONE. [Concomitant]
     Active Substance: FLUTICASONE
     Indication: STEROID THERAPY
     Dates: start: 200003, end: 201612
  44. CALCIUM CARBONATE. [Concomitant]
     Active Substance: CALCIUM CARBONATE
     Dates: start: 2001

REACTIONS (2)
  - Renal failure [Unknown]
  - Chronic kidney disease [Not Recovered/Not Resolved]

NARRATIVE: CASE EVENT DATE: 20130708
